FAERS Safety Report 11939763 (Version 2)
Quarter: 2016Q2

REPORT INFORMATION
  Report Type: Spontaneous
  Country: FR (occurrence: FR)
  Receive Date: 20160122
  Receipt Date: 20160420
  Transmission Date: 20160815
  Serious: Yes (Other)
  Sender: FDA-Public Use
  Company Number: FR-BRISTOL-MYERS SQUIBB COMPANY-BMS-2016-002405

PATIENT
  Sex: Female

DRUGS (5)
  1. LOPINAVIR [Suspect]
     Active Substance: LOPINAVIR
     Indication: HIV INFECTION
     Dosage: UNK
     Route: 065
     Dates: start: 20050615
  2. TELZIR [Suspect]
     Active Substance: FOSAMPRENAVIR CALCIUM
     Indication: HIV INFECTION
     Dosage: UNK
     Route: 065
     Dates: start: 20050615, end: 20060801
  3. REYATAZ [Suspect]
     Active Substance: ATAZANAVIR SULFATE
     Indication: HIV INFECTION
     Dosage: UNK
     Route: 065
     Dates: start: 20060801, end: 20061024
  4. EPIVIR [Suspect]
     Active Substance: LAMIVUDINE
     Dosage: UNK
     Route: 064
     Dates: start: 20060801, end: 20061024
  5. EPIVIR [Suspect]
     Active Substance: LAMIVUDINE
     Indication: HIV INFECTION
     Dosage: UNK
     Route: 065
     Dates: start: 20050615, end: 20060801

REACTIONS (6)
  - Live birth [Unknown]
  - Uterine disorder [Unknown]
  - Off label use [None]
  - Cholestasis of pregnancy [Unknown]
  - Caesarean section [Unknown]
  - Maternal exposure during pregnancy [Recovered/Resolved]

NARRATIVE: CASE EVENT DATE: 20061231
